FAERS Safety Report 5571765-0 (Version None)
Quarter: 2007Q4

REPORT INFORMATION
  Report Type: 
  Country: None (occurrence: None)
  Receive Date: 20071221
  Receipt Date: 20071218
  Transmission Date: 20080405
  Serious: Yes (Hospitalization)
  Sender: FDA-Public Use
  Company Number: B0497479A

PATIENT
  Age: 9 Year
  Sex: Female
  Weight: 35 kg

DRUGS (2)
  1. SERETIDE [Suspect]
     Indication: ASTHMATIC CRISIS
     Dosage: 38PUFF SINGLE DOSE
     Route: 055
     Dates: start: 20071001, end: 20071001
  2. SOLUPRED [Concomitant]
     Indication: ASTHMATIC CRISIS
     Dosage: 20MG PER DAY
     Route: 048
     Dates: start: 20071001, end: 20071001

REACTIONS (5)
  - HYPOKALAEMIA [None]
  - HYPOTENSION [None]
  - INCORRECT DOSE ADMINISTERED [None]
  - OVERDOSE [None]
  - TACHYCARDIA [None]
